FAERS Safety Report 5444617-4 (Version None)
Quarter: 2007Q3

REPORT INFORMATION
  Report Type: 
  Country: None (occurrence: None)
  Receive Date: 20070906
  Receipt Date: 20070406
  Transmission Date: 20080115
  Serious: Yes (Hospitalization)
  Sender: FDA-Public Use
  Company Number: US-AVENTIS-200712127US

PATIENT
  Age: 13 Year
  Sex: Female

DRUGS (2)
  1. ARAVA [Suspect]
     Dates: start: 20070128, end: 20070207
  2. PREDNISONE [Concomitant]
     Dosage: DOSE: UNK

REACTIONS (3)
  - HEPATIC FAILURE [None]
  - JAUNDICE [None]
  - PANCREATITIS [None]
